FAERS Safety Report 5305969-9 (Version None)
Quarter: 2007Q2

REPORT INFORMATION
  Report Type: 
  Country: None (occurrence: None)
  Receive Date: 20070424
  Receipt Date: 20070412
  Transmission Date: 20071010
  Serious: Yes (Death, Hospitalization)
  Sender: FDA-Public Use
  Company Number: US-MERCK-0704USA03099

PATIENT
  Age: 62 Year
  Sex: Male

DRUGS (11)
  1. PRINIVIL [Suspect]
     Route: 048
  2. CYCLOSPORINE [Suspect]
     Route: 065
  3. MYCOPHENOLATE MOFETIL [Concomitant]
     Route: 065
  4. FELODIPINE [Concomitant]
     Route: 065
  5. ATORVASTATIN [Concomitant]
     Route: 065
  6. TERAZOSIN HYDROCHLORIDE [Concomitant]
     Route: 065
  7. ASPIRIN [Concomitant]
     Route: 065
  8. CLONIDINE [Concomitant]
     Route: 065
  9. AMPHOTERICIN B [Suspect]
     Route: 065
  10. GENTAMICIN [Suspect]
     Route: 065
  11. LEVOFLOXACIN [Concomitant]
     Route: 065

REACTIONS (14)
  - ACUTE MYELOID LEUKAEMIA [None]
  - COUGH [None]
  - DEATH [None]
  - FEBRILE NEUTROPENIA [None]
  - MENTAL STATUS CHANGES [None]
  - NASAL CONGESTION [None]
  - PNEUMONIA FUNGAL [None]
  - PULMONARY ALVEOLAR HAEMORRHAGE [None]
  - RASH ERYTHEMATOUS [None]
  - RASH PRURITIC [None]
  - RENAL FAILURE ACUTE [None]
  - SKIN LESION [None]
  - TUMOUR LYSIS SYNDROME [None]
  - URINARY TRACT OBSTRUCTION [None]
